FAERS Safety Report 9526848 (Version 3)
Quarter: 2013Q4

REPORT INFORMATION
  Report Type: Report from Study
  Country: DE (occurrence: DE)
  Receive Date: 20130916
  Receipt Date: 20131204
  Transmission Date: 20140711
  Serious: Yes (Hospitalization)
  Sender: FDA-Public Use
  Company Number: PHHO2013DE011769

PATIENT
  Sex: 0

DRUGS (7)
  1. AMN107 [Suspect]
     Indication: CHRONIC MYELOID LEUKAEMIA
     Dosage: 400 MG, BID
     Route: 048
     Dates: start: 20071128
  2. LANTUS [Concomitant]
     Indication: DIABETES MELLITUS
     Dosage: 20IE QD
     Dates: end: 20130808
  3. LANTUS [Concomitant]
     Dosage: 20IE QD
     Dates: end: 20130822
  4. NOVORAPID [Concomitant]
     Indication: DIABETES MELLITUS
     Dosage: AS NEEDED, TID
     Dates: end: 20130808
  5. NOVORAPID [Concomitant]
     Dosage: AS NEEDED, TID
     Dates: end: 20130822
  6. PANTOZOL [Concomitant]
     Indication: PROPHYLAXIS AGAINST GASTROINTESTINAL ULCER
     Dosage: 40 MG, QD
     Dates: start: 20071101, end: 20130822
  7. SIMVASTATIN [Concomitant]
     Dosage: 20 MG, QD
     Dates: start: 20110210, end: 20130822

REACTIONS (4)
  - Erythema [Recovered/Resolved]
  - Chest pain [Recovered/Resolved]
  - Spinal pain [Not Recovered/Not Resolved]
  - Vertigo [Recovered/Resolved]
